FAERS Safety Report 18025899 (Version 1)
Quarter: 2020Q3

REPORT INFORMATION
  Report Type: Spontaneous
  Country: FR (occurrence: FR)
  Receive Date: 20200715
  Receipt Date: 20200715
  Transmission Date: 20201103
  Serious: Yes (Other)
  Sender: FDA-Public Use
  Company Number: FR-MYLANLABS-2020M1062759

PATIENT
  Age: 25 Year
  Sex: Male

DRUGS (8)
  1. TRACRIUM [Suspect]
     Active Substance: ATRACURIUM BESYLATE
     Indication: GENERAL ANAESTHESIA
     Dosage: 1 DOSAGE FORM, TOTAL
     Route: 042
     Dates: start: 20200529, end: 20200529
  2. LIDOCAINE. [Suspect]
     Active Substance: LIDOCAINE
     Indication: GENERAL ANAESTHESIA
     Dosage: 1 DOSAGE FORM, TOTAL
     Dates: start: 20200529, end: 20200529
  3. SUFENTANIL [Suspect]
     Active Substance: SUFENTANIL
     Indication: GENERAL ANAESTHESIA
     Dosage: 1 DOSAGE FORM, TOTAL
     Route: 042
     Dates: start: 20200529, end: 20200529
  4. DEXAMETHASONE. [Suspect]
     Active Substance: DEXAMETHASONE
     Indication: GENERAL ANAESTHESIA
     Dosage: 1 DOSAGE FORM, TOTAL
     Route: 042
     Dates: start: 20200529, end: 20200529
  5. PROPOFOL. [Suspect]
     Active Substance: PROPOFOL
     Indication: GENERAL ANAESTHESIA
     Dosage: 1 DOSAGE FORM, TOTAL
     Route: 042
     Dates: start: 20200529, end: 20200529
  6. CEFAZOLIN [Suspect]
     Active Substance: CEFAZOLIN
     Indication: GENERAL ANAESTHESIA
     Dosage: 1 DOSAGE FORM, TOTAL
     Route: 042
     Dates: start: 20200529, end: 20200529
  7. TAMSULOSIN [Concomitant]
     Active Substance: TAMSULOSIN
     Dosage: UNK
  8. TADENAN [Concomitant]
     Active Substance: PYGEUM

REACTIONS (1)
  - Blood pressure decreased [Recovered/Resolved]

NARRATIVE: CASE EVENT DATE: 20200529
